FAERS Safety Report 24732164 (Version 1)
Quarter: 2024Q4

REPORT INFORMATION
  Report Type: Spontaneous
  Country: MX (occurrence: MX)
  Receive Date: 20241213
  Receipt Date: 20241213
  Transmission Date: 20250115
  Serious: Yes (Hospitalization)
  Sender: NOVARTIS
  Company Number: MX-002147023-NVSC2024MX236015

PATIENT
  Age: 54 Year
  Sex: Female

DRUGS (1)
  1. DABRAFENIB [Suspect]
     Active Substance: DABRAFENIB
     Indication: Erdheim-Chester disease
     Dosage: UNK
     Route: 065

REACTIONS (11)
  - Heart failure with reduced ejection fraction [Recovered/Resolved]
  - Dyspnoea [Recovered/Resolved]
  - Haemodynamic instability [Recovered/Resolved]
  - Rales [Recovered/Resolved]
  - Exophthalmos [Recovered/Resolved]
  - Cardiorenal syndrome [Recovered/Resolved]
  - Acute kidney injury [Recovered/Resolved]
  - Pneumonia [Recovered/Resolved]
  - Sepsis [Recovered/Resolved]
  - Dysarthria [Recovered/Resolved]
  - Off label use [Unknown]
